FAERS Safety Report 22959098 (Version 3)
Quarter: 2023Q4

REPORT INFORMATION
  Report Type: Spontaneous
  Country: AU (occurrence: AU)
  Receive Date: 20230919
  Receipt Date: 20231123
  Transmission Date: 20240110
  Serious: Yes (Other)
  Sender: FDA-Public Use
  Company Number: AU-CELLTRION INC.-2021AU012670

PATIENT

DRUGS (2)
  1. INFLECTRA [Suspect]
     Active Substance: INFLIXIMAB-DYYB
     Indication: Crohn^s disease
     Dosage: UNK
     Dates: start: 201809
  2. INFLECTRA [Suspect]
     Active Substance: INFLIXIMAB-DYYB
     Dosage: 10 MG/KG (700MG) 6 WEEKLY
     Dates: start: 202005

REACTIONS (5)
  - Rectal haemorrhage [Unknown]
  - Haemorrhoids [Unknown]
  - Excessive granulation tissue [Unknown]
  - Pseudopolyp [Unknown]
  - Off label use [Unknown]
